FAERS Safety Report 16109538 (Version 4)
Quarter: 2020Q3

REPORT INFORMATION
  Report Type: Spontaneous
  Country: JP (occurrence: JP)
  Receive Date: 20190324
  Receipt Date: 20200728
  Transmission Date: 20201102
  Serious: Yes (Other)
  Sender: FDA-Public Use
  Company Number: JP-BEH-2019100503

PATIENT
  Age: 21 Year
  Sex: Male
  Weight: 30 kg

DRUGS (4)
  1. HIZENTRA [Suspect]
     Active Substance: HUMAN IMMUNOGLOBULIN G
     Dosage: 2 GRAM, QW
     Route: 058
     Dates: start: 20180613, end: 20180613
  2. HIZENTRA [Suspect]
     Active Substance: HUMAN IMMUNOGLOBULIN G
     Dosage: 2 GRAM, QW
     Route: 058
     Dates: start: 20180627, end: 20180627
  3. HIZENTRA [Suspect]
     Active Substance: HUMAN IMMUNOGLOBULIN G
     Indication: SELECTIVE IGG SUBCLASS DEFICIENCY
     Dosage: 2 GRAM, QW
     Route: 058
     Dates: start: 20170826
  4. DIAPP [Concomitant]
     Active Substance: DIAZEPAM
     Dosage: UNK
     Dates: start: 20180628

REACTIONS (5)
  - Anaphylactic reaction [Unknown]
  - Seizure [Unknown]
  - Pyrexia [Recovering/Resolving]
  - Chills [Unknown]
  - Pyrexia [Recovering/Resolving]

NARRATIVE: CASE EVENT DATE: 20180615
